FAERS Safety Report 10399915 (Version 2)
Quarter: 2014Q3

REPORT INFORMATION
  Report Type: Spontaneous
  Country: GB (occurrence: GB)
  Receive Date: 20140821
  Receipt Date: 20140905
  Transmission Date: 20150326
  Serious: Yes (Other)
  Sender: FDA-Public Use
  Company Number: GB-TEVA-501886ISR

PATIENT
  Age: 62 Year
  Sex: Female
  Weight: 48 kg

DRUGS (4)
  1. AMOXICILLIN W/CLAVULANIC ACID [Suspect]
     Active Substance: AMOXICILLIN\CLAVULANIC ACID
     Indication: TOOTH ABSCESS
     Dosage: 1875 MILLIGRAM DAILY;
     Route: 048
     Dates: start: 20140219, end: 20140226
  2. CALCICHEW D3 [Concomitant]
     Active Substance: CALCIUM\CHOLECALCIFEROL
     Indication: OSTEOPENIA
     Dosage: 2 DOSAGE FORMS DAILY; ONGOING.
     Route: 048
     Dates: start: 20080506
  3. LANSOPRAZOLE. [Concomitant]
     Active Substance: LANSOPRAZOLE
     Indication: GASTROOESOPHAGEAL REFLUX DISEASE
     Dosage: 30 MILLIGRAM DAILY;
     Route: 048
     Dates: start: 20131119, end: 20131217
  4. ZAPAIN [Concomitant]
     Active Substance: ACETAMINOPHEN\CODEINE PHOSPHATE
     Indication: PAIN
     Dosage: UP TO 4 TIMES A DAY
     Route: 048
     Dates: start: 20140217, end: 20140317

REACTIONS (5)
  - Malaise [Recovered/Resolved]
  - Drug-induced liver injury [Recovered/Resolved]
  - Nausea [Recovered/Resolved]
  - Liver function test abnormal [Recovered/Resolved]
  - Decreased appetite [Recovered/Resolved]

NARRATIVE: CASE EVENT DATE: 20140317
